FAERS Safety Report 5739564-4 (Version None)
Quarter: 2008Q2

REPORT INFORMATION
  Report Type: 
  Country: None (occurrence: None)
  Receive Date: 20080513
  Receipt Date: 20080508
  Transmission Date: 20081010
  Serious: Yes (Hospitalization, Other)
  Sender: FDA-Public Use
  Company Number: 2007SP020160

PATIENT
  Age: 79 Year
  Sex: Female
  Weight: 48 kg

DRUGS (12)
  1. TEMODAL [Suspect]
     Indication: GLIOBLASTOMA MULTIFORME
     Dosage: SEE IMAGE
     Route: 048
     Dates: start: 20070330, end: 20070412
  2. TEMODAL [Suspect]
     Indication: GLIOBLASTOMA MULTIFORME
     Dosage: SEE IMAGE
     Route: 048
     Dates: start: 20070620, end: 20070620
  3. TEMODAL [Suspect]
     Indication: GLIOBLASTOMA MULTIFORME
     Dosage: SEE IMAGE
     Route: 048
     Dates: start: 20070627, end: 20070627
  4. TEMODAL [Suspect]
     Indication: GLIOBLASTOMA MULTIFORME
     Dosage: SEE IMAGE
     Route: 048
     Dates: start: 20070629, end: 20070629
  5. TEMODAL [Suspect]
     Indication: GLIOBLASTOMA MULTIFORME
     Dosage: SEE IMAGE
     Route: 048
     Dates: start: 20070702, end: 20070702
  6. TEMODAL [Suspect]
     Indication: GLIOBLASTOMA MULTIFORME
     Dosage: SEE IMAGE
     Route: 048
     Dates: start: 20070801, end: 20070805
  7. DEPAKENE [Suspect]
     Indication: CONVULSION
     Dosage: PO
     Route: 048
     Dates: end: 20070413
  8. SEROQUEL [Concomitant]
  9. NAVOBAN [Concomitant]
  10. PRIMPERAN TAB [Concomitant]
  11. MAGNESIUM OXIDE [Concomitant]
  12. GLYSENNID [Concomitant]

REACTIONS (5)
  - HEPATIC FUNCTION ABNORMAL [None]
  - METASTASES TO CENTRAL NERVOUS SYSTEM [None]
  - NEOPLASM PROGRESSION [None]
  - NEUTROPHIL COUNT DECREASED [None]
  - WHITE BLOOD CELL COUNT DECREASED [None]
